FAERS Safety Report 16052535 (Version 1)
Quarter: 2019Q1

REPORT INFORMATION
  Report Type: Spontaneous
  Country: US (occurrence: US)
  Receive Date: 20190208
  Receipt Date: 20190208
  Transmission Date: 20190418
  Serious: Yes (Hospitalization)
  Sender: FDA-Public Use
  Company Number: None

PATIENT
  Sex: Male

DRUGS (4)
  1. CAPECITABINE, 500MG [Suspect]
     Active Substance: CAPECITABINE
     Indication: COLON CANCER
     Route: 048
     Dates: start: 20190117
  2. FLUOCIN [Concomitant]
     Active Substance: FLUOCINOLONE ACETONIDE
  3. LISINOPRIL. [Concomitant]
     Active Substance: LISINOPRIL
  4. ACET [Concomitant]
     Active Substance: ACETAMINOPHEN

REACTIONS (3)
  - Decreased appetite [None]
  - Chest pain [None]
  - Nausea [None]
